FAERS Safety Report 9787936 (Version 1)
Quarter: 2013Q4

REPORT INFORMATION
  Report Type: Spontaneous
  Country: US (occurrence: None)
  Receive Date: 20131227
  Receipt Date: 20131227
  Transmission Date: 20140711
  Serious: Yes (Other)
  Sender: FDA-Public Use
  Company Number: None

PATIENT
  Age: 58 Year
  Sex: Female
  Weight: 80.29 kg

DRUGS (2)
  1. CARBOPLATIN [Suspect]
     Indication: OVARIAN CANCER
     Dosage: 730 MG  EVERY 21 DAYS  INTRAVENOUS
     Route: 042
     Dates: start: 20131122, end: 20131122
  2. PACLITAXEL [Concomitant]

REACTIONS (4)
  - Infusion related reaction [None]
  - Palmar erythema [None]
  - Pruritus [None]
  - Nausea [None]
